FAERS Safety Report 21751049 (Version 1)
Quarter: 2022Q4

REPORT INFORMATION
  Report Type: Spontaneous
  Country: GB (occurrence: GB)
  Receive Date: 20221219
  Receipt Date: 20221219
  Transmission Date: 20230113
  Serious: Yes (Other)
  Sender: FDA-Public Use
  Company Number: GB-TEVA-2022-GB-2835325

PATIENT
  Age: 6 Month
  Sex: Female

DRUGS (4)
  1. FLUDARABINE [Suspect]
     Active Substance: FLUDARABINE PHOSPHATE
     Indication: Acute leukaemia
     Route: 065
  2. CYTARABINE [Suspect]
     Active Substance: CYTARABINE
     Indication: Acute leukaemia
     Dosage: HIGH DOSE
     Route: 065
  3. IDARUBICIN [Suspect]
     Active Substance: IDARUBICIN
     Indication: Acute leukaemia
     Route: 065
  4. BLINATUMOMAB [Suspect]
     Active Substance: BLINATUMOMAB
     Indication: Acute leukaemia
     Route: 050

REACTIONS (3)
  - Cytokine release syndrome [Unknown]
  - Drug ineffective [Unknown]
  - Off label use [Unknown]
